FAERS Safety Report 11124295 (Version 1)
Quarter: 2015Q2

REPORT INFORMATION
  Report Type: Spontaneous
  Country: US (occurrence: US)
  Receive Date: 20150520
  Receipt Date: 20150520
  Transmission Date: 20150821
  Serious: Yes (Other)
  Sender: FDA-Public Use
  Company Number: US-BEH-2014040535

PATIENT
  Age: 59 Year
  Sex: Female

DRUGS (2)
  1. IVIG [Suspect]
     Active Substance: HUMAN IMMUNOGLOBULIN G
     Indication: HASHIMOTO^S ENCEPHALOPATHY
     Dosage: 2GM/KG GIVEN TWICE AT 1 MONTH INTERVALS
  2. IVIG [Suspect]
     Active Substance: HUMAN IMMUNOGLOBULIN G
     Indication: ENCEPHALOMYELITIS
     Dosage: 2GM/KG GIVEN TWICE AT ONE MONTH INTERVALS

REACTIONS (4)
  - Drug ineffective for unapproved indication [Recovered/Resolved]
  - Hashimoto^s encephalopathy [Recovered/Resolved]
  - Encephalomyelitis [Recovered/Resolved]
  - Muscle rigidity [Recovered/Resolved]
